FAERS Safety Report 5593243-5 (Version None)
Quarter: 2008Q1

REPORT INFORMATION
  Report Type: 
  Country: None (occurrence: None)
  Receive Date: 20080116
  Receipt Date: 20080108
  Transmission Date: 20080703
  Serious: Yes (Other)
  Sender: FDA-Public Use
  Company Number: DE-ASTRAZENECA-2008PK00090

PATIENT
  Weight: 24 kg

DRUGS (2)
  1. CANDESARTAN CILEXETIL [Suspect]
     Indication: HYPERTENSION
     Route: 048
     Dates: start: 20060426, end: 20080107
  2. IRON [Concomitant]
     Indication: IRON DEFICIENCY
     Route: 048

REACTIONS (1)
  - LYMPHOEDEMA [None]
